FAERS Safety Report 21981428 (Version 1)
Quarter: 2023Q1

REPORT INFORMATION
  Report Type: Spontaneous
  Country: US (occurrence: US)
  Receive Date: 20230211
  Receipt Date: 20230211
  Transmission Date: 20230418
  Serious: No
  Sender: FDA-Public Use
  Company Number: US-TAKEDA-2023TUS013344

PATIENT
  Age: 17 Year

DRUGS (2)
  1. ADDERALL XR [Suspect]
     Active Substance: AMPHETAMINE ASPARTATE\AMPHETAMINE SULFATE\DEXTROAMPHETAMINE SACCHARATE\DEXTROAMPHETAMINE SULFATE
     Indication: Product used for unknown indication
     Route: 065
  2. CAPLYTA [Suspect]
     Active Substance: LUMATEPERONE
     Indication: Product used for unknown indication
     Route: 065

REACTIONS (8)
  - Gait disturbance [Unknown]
  - Hangover [Unknown]
  - Disturbance in attention [Unknown]
  - Headache [Unknown]
  - Thirst [Unknown]
  - Vertigo [Unknown]
  - Abnormal behaviour [Unknown]
  - Somnolence [Unknown]
